FAERS Safety Report 9708948 (Version 2)
Quarter: 2014Q2

REPORT INFORMATION
  Report Type: Spontaneous
  Country: BR (occurrence: None)
  Receive Date: 20131122
  Receipt Date: 20140425
  Transmission Date: 20141212
  Serious: Yes (Hospitalization, Other)
  Sender: FDA-Public Use
  Company Number: QPAP20130006

PATIENT
  Age: 26 Day
  Sex: Male
  Weight: 3 kg

DRUGS (1)
  1. Q-PAP [Suspect]
     Indication: PRODUCT USED FOR UNKNOWN INDICATION
     Dosage: 10 MILLIGRAM(S) /KILOGRAM, DROPS (FOR ORAL USE) ) (PARACETAMOL)

REACTIONS (17)
  - Irritability [None]
  - Acute hepatic failure [None]
  - Shock [None]
  - Capillary nail refill test abnormal [None]
  - Feeding disorder neonatal [None]
  - Vomiting [None]
  - Pyrexia [None]
  - Jaundice [None]
  - Hepatomegaly [None]
  - Metabolic acidosis [None]
  - Coagulopathy [None]
  - Hypoglycaemia [None]
  - Pulse abnormal [None]
  - Gastrointestinal haemorrhage [None]
  - Haemoglobin decreased [None]
  - Exposure during breast feeding [None]
  - Toxicity to various agents [None]
